FAERS Safety Report 7110918-7 (Version None)
Quarter: 2010Q4

REPORT INFORMATION
  Report Type: 
  Country: None (occurrence: None)
  Receive Date: 20101118
  Receipt Date: 20101013
  Transmission Date: 20110411
  Serious: Yes (Other)
  Sender: FDA-Public Use
  Company Number: FR-AMGEN-FRASP2010000111

PATIENT

DRUGS (2)
  1. ENBREL [Suspect]
     Indication: PSORIATIC ARTHROPATHY
     Dosage: UNSPECIFIED FORM/50 MG (FREQUENCY UNKNOWN)
     Route: 058
     Dates: start: 20070101
  2. ENBREL [Suspect]
     Dosage: 50 MG (FREQUENCY UNKNOWN)
     Route: 058
     Dates: start: 20100101

REACTIONS (4)
  - AORTIC ANEURYSM [None]
  - FEELING ABNORMAL [None]
  - FORMICATION [None]
  - NEUROPATHY PERIPHERAL [None]
